FAERS Safety Report 7573157-1 (Version None)
Quarter: 2011Q2

REPORT INFORMATION
  Report Type: 
  Country: None (occurrence: None)
  Receive Date: 20110627
  Receipt Date: 20110621
  Transmission Date: 20111010
  Serious: Yes (Hospitalization)
  Sender: FDA-Public Use
  Company Number: JP-BRISTOL-MYERS SQUIBB COMPANY-15429277

PATIENT
  Age: 80 Year
  Sex: Female
  Weight: 41 kg

DRUGS (22)
  1. MIZORIBINE [Concomitant]
  2. LORCAM [Concomitant]
     Indication: RHEUMATOID ARTHRITIS
  3. AMLODIPINE [Concomitant]
  4. CRESTOR [Concomitant]
  5. ACTOS [Concomitant]
  6. ORENCIA [Suspect]
     Dosage: LAST DOSE RECEIVED ON 13APR11
     Route: 042
     Dates: start: 20101201
  7. NEUER [Concomitant]
  8. ZOLPIDEM [Concomitant]
  9. ASPIRIN [Concomitant]
  10. SODIUM ALGINATE [Concomitant]
  11. RED BLOOD CELLS [Concomitant]
  12. SULFASALAZINE [Concomitant]
  13. BONOTEO [Concomitant]
  14. VOLTAREN [Concomitant]
     Indication: RHEUMATOID ARTHRITIS
     Dosage: VOLATREN SUPPO
  15. STROCAIN [Concomitant]
  16. LASIX [Concomitant]
  17. CANDESARTAN CILEXETIL [Concomitant]
  18. METHYCOBAL [Concomitant]
     Indication: RHEUMATOID ARTHRITIS
  19. RABEPRAZOLE SODIUM [Concomitant]
  20. GLUFAST [Concomitant]
  21. PREDNISOLONE [Concomitant]
     Indication: RHEUMATOID ARTHRITIS
     Route: 048
  22. CYTOTEC [Concomitant]

REACTIONS (2)
  - ANAEMIA [None]
  - DISLOCATION OF VERTEBRA [None]
